FAERS Safety Report 9176731 (Version 1)
Quarter: 2013Q1

REPORT INFORMATION
  Report Type: Spontaneous
  Country: GB (occurrence: GB)
  Receive Date: 20130321
  Receipt Date: 20130321
  Transmission Date: 20140127
  Serious: Yes (Death, Hospitalization, Other)
  Sender: FDA-Public Use
  Company Number: GB-MPIJNJ-2013-01117

PATIENT
  Sex: 0

DRUGS (1)
  1. VELCADE [Suspect]
     Indication: PLASMA CELL MYELOMA
     Dosage: 1.3 MG/M2, UNK
     Route: 065
     Dates: start: 20130125, end: 20130125

REACTIONS (6)
  - Depressed level of consciousness [Fatal]
  - Confusional state [Unknown]
  - Convulsion [Unknown]
  - Renal failure [Unknown]
  - Malaise [Not Recovered/Not Resolved]
  - Pain [Unknown]
